FAERS Safety Report 25456534 (Version 1)
Quarter: 2025Q2

REPORT INFORMATION
  Report Type: Spontaneous
  Country: US (occurrence: US)
  Receive Date: 20250619
  Receipt Date: 20250619
  Transmission Date: 20250716
  Serious: Yes (Hospitalization, Disabling, Other)
  Sender: JOHNSON AND JOHNSON
  Company Number: US-JNJFOC-20250619689

PATIENT
  Age: 62 Year
  Sex: Male

DRUGS (1)
  1. CARVYKTI [Suspect]
     Active Substance: CILTACABTAGENE AUTOLEUCEL
     Indication: Plasma cell myeloma
     Dates: start: 20250520

REACTIONS (3)
  - Cranial nerve paralysis [Not Recovered/Not Resolved]
  - Parkinsonism [Not Recovered/Not Resolved]
  - Cytokine release syndrome [Unknown]
